FAERS Safety Report 5004889-7 (Version None)
Quarter: 2006Q1

REPORT INFORMATION
  Report Type: 
  Country: None (occurrence: None)
  Receive Date: 20060321
  Receipt Date: 20060127
  Transmission Date: 20060701
  Serious: No
  Sender: FDA-Public Use
  Company Number: YPA20060026

PATIENT
  Age: 79 Year
  Sex: Female

DRUGS (2)
  1. VESICARE [Suspect]
     Indication: COLONOSCOPY
     Dosage: 100 MG, UNK, ORAL
     Route: 048
     Dates: start: 20060118
  2. ZANTAC [Concomitant]

REACTIONS (10)
  - BLOOD PRESSURE INCREASED [None]
  - DIFFICULTY IN WALKING [None]
  - DISORIENTATION [None]
  - DRY MOUTH [None]
  - HEART RATE INCREASED [None]
  - OVERDOSE [None]
  - OXYGEN SATURATION DECREASED [None]
  - TREMOR [None]
  - VOMITING [None]
  - WRONG DRUG ADMINISTERED [None]
